FAERS Safety Report 4901781-0 (Version None)
Quarter: 2006Q1

REPORT INFORMATION
  Report Type: 
  Country: None (occurrence: None)
  Receive Date: 20060203
  Receipt Date: 20060203
  Transmission Date: 20060701
  Serious: Yes (Hospitalization)
  Sender: FDA-Public Use
  Company Number: None

PATIENT
  Age: 67 Year
  Sex: Female
  Weight: 76.2 kg

DRUGS (5)
  1. ACYCLOVIR [Suspect]
     Indication: MENINGITIS
     Dosage: 770 MG  EVERY 8 HOURS  IV BOLUS
     Route: 040
     Dates: start: 20060118, end: 20060126
  2. FOLIC ACID [Concomitant]
  3. ASPIRIN [Concomitant]
  4. METOPROLOL [Concomitant]
  5. LOVASTATIN [Concomitant]

REACTIONS (8)
  - CONDITION AGGRAVATED [None]
  - DEHYDRATION [None]
  - FATIGUE [None]
  - HEADACHE [None]
  - INCORRECT DRUG ADMINISTRATION RATE [None]
  - MALAISE [None]
  - NEPHROPATHY TOXIC [None]
  - RENAL FAILURE ACUTE [None]
